FAERS Safety Report 7148007-8 (Version None)
Quarter: 2010Q4

REPORT INFORMATION
  Report Type: 
  Country: None (occurrence: None)
  Receive Date: 20101206
  Receipt Date: 20101206
  Transmission Date: 20110411
  Serious: Yes (Hospitalization)
  Sender: FDA-Public Use
  Company Number: None

PATIENT
  Age: 20 Year
  Sex: Female
  Weight: 62.5964 kg

DRUGS (1)
  1. NORETHINDRONE ACETATE [Suspect]
     Indication: ENDOMETRIOSIS
     Dosage: 5 MG BID PO
     Route: 048
     Dates: start: 20030925, end: 20090630

REACTIONS (4)
  - HEPATIC ADENOMA [None]
  - PAIN [None]
  - TUMOUR HAEMORRHAGE [None]
  - TUMOUR RUPTURE [None]
